FAERS Safety Report 17594535 (Version 1)
Quarter: 2020Q1

REPORT INFORMATION
  Report Type: Spontaneous
  Country: JP (occurrence: JP)
  Receive Date: 20200327
  Receipt Date: 20200327
  Transmission Date: 20200409
  Serious: Yes (Death)
  Sender: FDA-Public Use
  Company Number: JP-BAUSCH-BL-2020-009299

PATIENT
  Age: 9 Decade

DRUGS (3)
  1. SODIUM PICOSULFATE [Suspect]
     Active Substance: SODIUM PICOSULFATE
     Indication: BOWEL PREPARATION
     Route: 048
  2. SENNOSIDE [Suspect]
     Active Substance: SENNOSIDES
     Indication: BOWEL PREPARATION
     Route: 048
  3. MOVIPREP [Suspect]
     Active Substance: ASCORBIC ACID\POLYETHYLENE GLYCOL 3350\POTASSIUM CHLORIDE\SODIUM ASCORBATE\SODIUM CHLORIDE\SODIUM SULFATE
     Indication: BOWEL PREPARATION
     Route: 048

REACTIONS (4)
  - Dyspnoea [Unknown]
  - Hypoxia [Fatal]
  - Pleural effusion [Fatal]
  - Respiratory arrest [Fatal]
